FAERS Safety Report 9744585 (Version 1)
Quarter: 2013Q4

REPORT INFORMATION
  Report Type: Spontaneous
  Country: IT (occurrence: IT)
  Receive Date: 20131210
  Receipt Date: 20131210
  Transmission Date: 20140711
  Serious: Yes (Other)
  Sender: FDA-Public Use
  Company Number: IT-ABBVIE-13P-083-1177992-00

PATIENT
  Age: 31 Year
  Sex: Female

DRUGS (1)
  1. DEPAKIN [Suspect]
     Indication: EPILEPSY
     Route: 048
     Dates: start: 20100101

REACTIONS (3)
  - Loss of consciousness [Recovering/Resolving]
  - Epilepsy [Recovering/Resolving]
  - Therapeutic response decreased [Recovering/Resolving]
